FAERS Safety Report 18616661 (Version 5)
Quarter: 2021Q4

REPORT INFORMATION
  Report Type: Report from Study
  Country: US (occurrence: US)
  Receive Date: 20201215
  Receipt Date: 20211027
  Transmission Date: 20220303
  Serious: Yes (Other)
  Sender: FDA-Public Use
  Company Number: US-TAIHO ONCOLOGY INC-EU-2020-04291

PATIENT
  Age: 49 Year
  Sex: Female
  Weight: 103.51 kg

DRUGS (32)
  1. LONSURF [Suspect]
     Active Substance: TIPIRACIL HYDROCHLORIDE\TRIFLURIDINE
     Indication: Colon cancer
     Dosage: CURRENT CYCLE UNKNOWN
     Route: 048
     Dates: start: 20200824
  2. LONSURF [Suspect]
     Active Substance: TIPIRACIL HYDROCHLORIDE\TRIFLURIDINE
     Dosage: CYCLE 15
     Route: 048
     Dates: start: 202008
  3. ALPRAZOLAM [Concomitant]
     Active Substance: ALPRAZOLAM
  4. LIDOCAINE HCI [Concomitant]
     Dosage: URETHRAL/MUCOSAL
     Route: 066
  5. METOCLOPRAMIDE HCI [Concomitant]
  6. ANUSOL-HC [Concomitant]
     Active Substance: HYDROCORTISONE
  7. LOMOTIL [Concomitant]
     Active Substance: ATROPINE SULFATE\DIPHENOXYLATE HYDROCHLORIDE
  8. MINOCYCLINE HCI [Concomitant]
  9. BACTROBAN NASAL [Concomitant]
     Route: 045
  10. MIRALAX [Concomitant]
     Active Substance: POLYETHYLENE GLYCOL 3350
  11. NYSTATIN [Concomitant]
     Active Substance: NYSTATIN
  12. VITAMIN D [Concomitant]
     Active Substance: VITAMIN D NOS
  13. NYSTATIN-TRIAMCINOLONE [Concomitant]
  14. OMEPRAZOLE [Concomitant]
     Active Substance: OMEPRAZOLE
  15. CLEOCIN-T [Concomitant]
  16. ONDANSETRON HYDROCHLORIDE [Concomitant]
     Active Substance: ONDANSETRON HYDROCHLORIDE
  17. OXYCODONE HYDROCHLORIDE [Concomitant]
     Active Substance: OXYCODONE HYDROCHLORIDE
  18. FERROUS SULFATE [Concomitant]
     Active Substance: FERROUS SULFATE
  19. ANUCORT-HC [Concomitant]
     Active Substance: HYDROCORTISONE ACETATE
  20. SLOW IRON [Concomitant]
  21. FLUCONAZOLE [Concomitant]
     Active Substance: FLUCONAZOLE
  22. XANAX [Concomitant]
     Active Substance: ALPRAZOLAM
  23. DIPHENHYDRAMINE HYDROCHLORIDE\LIDOCAINE HYDROCHLORIDE\NYSTATIN [Concomitant]
     Active Substance: DIPHENHYDRAMINE HYDROCHLORIDE\LIDOCAINE HYDROCHLORIDE\NYSTATIN
  24. FLUOCINONIDE [Concomitant]
     Active Substance: FLUOCINONIDE
  25. ACETAMINOPHEN\OXYCODONE HYDROCHLORIDE [Concomitant]
     Active Substance: ACETAMINOPHEN\OXYCODONE HYDROCHLORIDE
  26. HYDROCORTISONE (PERIANAL) [Concomitant]
  27. KETOCONAZOLE [Concomitant]
     Active Substance: KETOCONAZOLE
  28. IBUPROFEN [Concomitant]
     Active Substance: IBUPROFEN
  29. KLOR-CON M10 [Concomitant]
     Active Substance: POTASSIUM CHLORIDE
  30. HYOSCYAMINE SULFATE [Concomitant]
     Active Substance: HYOSCYAMINE SULFATE
  31. FUROSEMIDE [Concomitant]
     Active Substance: FUROSEMIDE
  32. HYDROCHLOROTHIAZIDE [Concomitant]
     Active Substance: HYDROCHLOROTHIAZIDE

REACTIONS (5)
  - Metastases to lymph nodes [Unknown]
  - Alopecia [Unknown]
  - Nausea [Unknown]
  - Product distribution issue [Unknown]
  - Therapy interrupted [Unknown]
